FAERS Safety Report 6353333-6 (Version None)
Quarter: 2009Q3

REPORT INFORMATION
  Report Type: 
  Country: None (occurrence: None)
  Receive Date: 20090912
  Receipt Date: 20080707
  Transmission Date: 20100115
  Serious: No
  Sender: FDA-Public Use
  Company Number: US-BAUSCH-2008BL003044

PATIENT
  Age: 70 Year
  Sex: Female

DRUGS (2)
  1. TROPICAMIDE [Suspect]
     Indication: OPHTHALMOLOGICAL EXAMINATION
     Route: 047
     Dates: start: 20080508, end: 20080508
  2. PHENYLEPHRINE HYDROCHLORIDE OPHTHALMIC SOLUTION USP 2.5% [Suspect]
     Indication: OPHTHALMOLOGICAL EXAMINATION
     Route: 047
     Dates: start: 20080508, end: 20080508

REACTIONS (1)
  - DRUG EFFECT PROLONGED [None]
